FAERS Safety Report 4486847-4 (Version None)
Quarter: 2004Q3

REPORT INFORMATION
  Report Type: 
  Country: None (occurrence: None)
  Receive Date: 20040921
  Receipt Date: 20030813
  Transmission Date: 20050211
  Serious: Yes (Hospitalization)
  Sender: FDA-Public Use
  Company Number: 163-20785-03080569

PATIENT
  Age: 60 Year
  Sex: Female

DRUGS (18)
  1. THALOMID [Suspect]
     Indication: MULTIPLE MYELOMA
     Dosage: 50 MG, DAILY, ORAL
     Route: 048
     Dates: start: 20020328
  2. VELCADE [Suspect]
     Indication: MULTIPLE MYELOMA
     Dosage: 1 MG/M2
     Dates: start: 20020307, end: 20020402
  3. MIRAPEX [Concomitant]
  4. PREMPRO 14/14 [Concomitant]
  5. PROCRIT [Concomitant]
  6. ACYCLOVIR [Concomitant]
  7. OXYCONTIN [Concomitant]
  8. AMBIEN [Concomitant]
  9. VITAMIN B12 [Concomitant]
  10. PAMIDRONATE DISODIUM [Concomitant]
  11. MULTIVITAMIN (MULTIVITAMINS) [Concomitant]
  12. GLUCOSAMINE (GLUCOSAMINE) [Concomitant]
  13. MIRALAX [Concomitant]
  14. LOVENOX [Concomitant]
  15. ZANTAC [Concomitant]
  16. GATIFLOXACIN [Concomitant]
  17. OXYCODONE (OXYCODONE) [Concomitant]
  18. CEFTRIAXONE [Concomitant]

REACTIONS (8)
  - CHILLS [None]
  - DIARRHOEA [None]
  - DYSPNOEA [None]
  - LUNG INFILTRATION [None]
  - PHARYNGITIS [None]
  - PHARYNGOLARYNGEAL PAIN [None]
  - PNEUMONIA PNEUMOCOCCAL [None]
  - PYREXIA [None]
